FAERS Safety Report 10273605 (Version 2)
Quarter: 2014Q3

REPORT INFORMATION
  Report Type: Report from Study
  Country: US (occurrence: US)
  Receive Date: 20140702
  Receipt Date: 20140702
  Transmission Date: 20150326
  Serious: Yes (Hospitalization, Other)
  Sender: FDA-Public Use
  Company Number: US-BAYER-2014-070221

PATIENT
  Age: 80 Year
  Sex: Female

DRUGS (1)
  1. STIVARGA [Suspect]
     Active Substance: REGORAFENIB
     Indication: COLON CANCER
     Dosage: 160 MG, QD
     Route: 048
     Dates: start: 20140418

REACTIONS (3)
  - Unresponsive to stimuli [None]
  - Haemorrhagic stroke [Not Recovered/Not Resolved]
  - Hypertensive crisis [None]

NARRATIVE: CASE EVENT DATE: 20140501
